FAERS Safety Report 14137479 (Version 3)
Quarter: 2018Q4

REPORT INFORMATION
  Report Type: Spontaneous
  Country: CH (occurrence: CH)
  Receive Date: 20171027
  Receipt Date: 20181211
  Transmission Date: 20190204
  Serious: Yes (Hospitalization, Other)
  Sender: FDA-Public Use
  Company Number: CH-PFIZER INC-2017462078

PATIENT
  Age: 84 Year
  Sex: Male

DRUGS (31)
  1. MADOPAR [Suspect]
     Active Substance: BENSERAZIDE HYDROCHLORIDE\LEVODOPA
     Dosage: 812.5 MG, DAILY
     Route: 048
     Dates: start: 2014, end: 20170912
  2. SERTRALINE [Concomitant]
     Active Substance: SERTRALINE HYDROCHLORIDE
     Dosage: 200 MG, 1X/DAY
  3. CRESTOR [Concomitant]
     Active Substance: ROSUVASTATIN CALCIUM
     Dosage: 5 MG, DAILY
  4. MOVICOL [Concomitant]
     Active Substance: POLYETHYLENE GLYCOL 3350\POTASSIUM CHLORIDE\SODIUM BICARBONATE\SODIUM CHLORIDE
     Dosage: 2 DF, 1X/DAY
  5. MADOPAR [Suspect]
     Active Substance: BENSERAZIDE HYDROCHLORIDE\LEVODOPA
     Dosage: 437.5 MG, DAILY
     Route: 048
     Dates: start: 20170913, end: 20170917
  6. SEROQUEL [Concomitant]
     Active Substance: QUETIAPINE FUMARATE
     Dosage: 25 MG, 3X/DAY
     Dates: start: 20170829
  7. ASPIRIN CARDIO [Concomitant]
     Active Substance: ASPIRIN
     Dosage: 100 MG, 1X/DAY
  8. DISTRANEURIN [Concomitant]
     Active Substance: CLOMETHIAZOLE
     Dosage: 1 DF, 3X/DAY (1 TAB, 3X/DAY)
     Route: 048
     Dates: end: 20170918
  9. CIRCADIN [Concomitant]
     Active Substance: MELATONIN
     Dosage: UNK
     Dates: start: 20171211
  10. MADOPAR LIQ 62.5 [Suspect]
     Active Substance: BENSERAZIDE HYDROCHLORIDE\LEVODOPA
     Dosage: 437.5 MG, DAILY
     Route: 048
     Dates: start: 20170913
  11. MADOPAR LIQ 62.5 [Suspect]
     Active Substance: BENSERAZIDE HYDROCHLORIDE\LEVODOPA
     Dosage: 750 MG/D
     Route: 048
     Dates: start: 20170918
  12. SEROQUEL [Concomitant]
     Active Substance: QUETIAPINE FUMARATE
     Dosage: 50 MG, 2X/DAY + 25 MG IN RESERVE
     Dates: end: 20170918
  13. XANAX [Suspect]
     Active Substance: ALPRAZOLAM
     Dosage: 0.25 MG, 2X/DAY
     Route: 048
     Dates: start: 1976
  14. XANAX [Suspect]
     Active Substance: ALPRAZOLAM
     Dosage: UNK
     Route: 048
     Dates: start: 2014
  15. MADOPAR [Suspect]
     Active Substance: BENSERAZIDE HYDROCHLORIDE\LEVODOPA
     Dosage: 500 MG, DAILY (125MG TWICE DAILY + 187.5 MG ONCE DAILY + 62.5MG ONCE DAILY (500 MG/DAY))
     Route: 048
     Dates: start: 20171106
  16. CLOPIN ECO [Suspect]
     Active Substance: CLOZAPINE
     Dosage: 6.25 MG, 2X/DAY
     Route: 048
     Dates: start: 20170918, end: 20170925
  17. SEROQUEL [Concomitant]
     Active Substance: QUETIAPINE FUMARATE
     Dosage: 6.25 MG, 3X/DAY
     Dates: start: 20171008
  18. DAFALGAN [Concomitant]
     Active Substance: ACETAMINOPHEN
     Dosage: UNK, AS NEEDED
  19. LYRICA [Suspect]
     Active Substance: PREGABALIN
     Dosage: 25 MG, 1X/DAY
     Route: 048
     Dates: start: 20170925, end: 2017
  20. XANAX [Suspect]
     Active Substance: ALPRAZOLAM
     Dosage: UNK
     Route: 048
     Dates: start: 20170901, end: 20170928
  21. SEROQUEL [Concomitant]
     Active Substance: QUETIAPINE FUMARATE
     Dosage: 25 MG, UNK
     Dates: start: 201708, end: 20170828
  22. BECOZYME C FORTE [Concomitant]
     Dosage: 1 DF, DAILY
  23. LYRICA [Suspect]
     Active Substance: PREGABALIN
     Dosage: 25 MG, 2X/DAY
     Route: 048
     Dates: start: 2017, end: 20171008
  24. LYRICA [Suspect]
     Active Substance: PREGABALIN
     Dosage: 25 MG, 1X/DAY
     Route: 048
     Dates: start: 20171009, end: 20171114
  25. MADOPAR [Suspect]
     Active Substance: BENSERAZIDE HYDROCHLORIDE\LEVODOPA
     Dosage: 750 MG, DAILY
     Route: 048
     Dates: end: 20171105
  26. CLOPIN ECO [Suspect]
     Active Substance: CLOZAPINE
     Dosage: 12.5 + 6.25 MG /DAILY
     Route: 048
     Dates: start: 20170926, end: 20171007
  27. GLAUPAX [Concomitant]
     Active Substance: ACETAZOLAMIDE
     Dosage: 250 MG, DAILY
  28. DISTRANEURIN [Concomitant]
     Active Substance: CLOMETHIAZOLE
     Dosage: 192 MG, 1X/DAY
     Route: 048
     Dates: start: 20171010
  29. MADOPAR LIQ 62.5 [Suspect]
     Active Substance: BENSERAZIDE HYDROCHLORIDE\LEVODOPA
     Dosage: UNK UNK, 1X/DAY (DAILY MORNING)
     Route: 048
     Dates: start: 2014
  30. MADOPAR [Suspect]
     Active Substance: BENSERAZIDE HYDROCHLORIDE\LEVODOPA
     Dosage: 812.5 MG, DAILY
     Route: 048
     Dates: start: 20170918
  31. DISTRANEURIN [Concomitant]
     Active Substance: CLOMETHIAZOLE
     Dosage: 1 DF, 3X/DAY (1 TAB, 3X/DAY)
     Route: 048
     Dates: start: 20171008

REACTIONS (9)
  - Cognitive disorder [Unknown]
  - Balance disorder [Not Recovered/Not Resolved]
  - Dementia [Unknown]
  - Fall [Recovered/Resolved]
  - Overdose [Unknown]
  - Illusion [Recovered/Resolved]
  - Loss of consciousness [Recovered/Resolved]
  - Vertigo [Not Recovered/Not Resolved]
  - Agitation [Recovered/Resolved]

NARRATIVE: CASE EVENT DATE: 201708
